FAERS Safety Report 8501087-7 (Version None)
Quarter: 2012Q3

REPORT INFORMATION
  Report Type: 
  Country: None (occurrence: None)
  Receive Date: 20120710
  Receipt Date: 20120702
  Transmission Date: 20120928
  Serious: Yes (Hospitalization, Other)
  Sender: FDA-Public Use
  Company Number: FR-ELI_LILLY_AND_COMPANY-FR201207000492

PATIENT
  Sex: Male

DRUGS (3)
  1. EFFIENT [Suspect]
     Dosage: 10 MG, UNK
     Route: 048
     Dates: start: 20111203, end: 20111206
  2. ASPEGIC 1000 [Concomitant]
     Dosage: UNK
     Dates: start: 20111202, end: 20111213
  3. PLAVIX [Concomitant]
     Dosage: 75 MG, UNK
     Dates: start: 20111202, end: 20111207

REACTIONS (4)
  - COLON CANCER [None]
  - POLYP [None]
  - GASTRITIS [None]
  - RECTAL HAEMORRHAGE [None]
